FAERS Safety Report 8199368-2 (Version None)
Quarter: 2012Q1

REPORT INFORMATION
  Report Type: 
  Country: None (occurrence: None)
  Receive Date: 20120309
  Receipt Date: 20120302
  Transmission Date: 20120608
  Serious: Yes (Other)
  Sender: FDA-Public Use
  Company Number: GB-JNJFOC-20120105457

PATIENT
  Age: 49 Year
  Sex: Female

DRUGS (6)
  1. FERROUS SULFATE TAB [Concomitant]
  2. OMEPRAZOLE [Concomitant]
  3. ACETAMINOPHEN [Concomitant]
  4. CALCIUM AND VITAMIN D [Concomitant]
  5. SIMPONI [Suspect]
     Indication: CROHN'S DISEASE
     Route: 058
     Dates: start: 20110801
  6. SIMPONI [Suspect]
     Indication: ANKYLOSING SPONDYLITIS
     Route: 058
     Dates: start: 20110801

REACTIONS (2)
  - OFF LABEL USE [None]
  - PUSTULAR PSORIASIS [None]
